FAERS Safety Report 6604970-2 (Version None)
Quarter: 2010Q1

REPORT INFORMATION
  Report Type: 
  Country: None (occurrence: None)
  Receive Date: 20100226
  Receipt Date: 20100216
  Transmission Date: 20100710
  Serious: Yes (Other)
  Sender: FDA-Public Use
  Company Number: ZA-PFIZER INC-2010020352

PATIENT
  Sex: Female

DRUGS (5)
  1. LYRICA [Suspect]
     Indication: PAIN
     Dosage: 75 MG, 1X/DAY, AT NIGHT
     Route: 048
  2. PANADO [Concomitant]
     Indication: PAIN
     Route: 048
  3. SYNAP FORTE [Concomitant]
     Indication: PAIN
     Dosage: UNK
     Route: 048
  4. VASOMIL [Concomitant]
     Indication: MITRAL VALVE PROLAPSE
     Dosage: UNK
     Route: 048
  5. ISMO [Concomitant]
     Indication: ANGINA PECTORIS
     Dosage: UNK
     Route: 048

REACTIONS (2)
  - PAIN [None]
  - PALPITATIONS [None]
